FAERS Safety Report 21114694 (Version 1)
Quarter: 2022Q3

REPORT INFORMATION
  Report Type: Spontaneous
  Country: US (occurrence: US)
  Receive Date: 20220721
  Receipt Date: 20220721
  Transmission Date: 20221027
  Serious: Yes (Other)
  Sender: FDA-Public Use
  Company Number: US-MEDEXUS PHARMA, INC.-2022MED00069

PATIENT
  Age: 87 Year
  Sex: Female
  Weight: 87.075 kg

DRUGS (5)
  1. RASUVO [Suspect]
     Active Substance: METHOTREXATE SODIUM
     Indication: Rheumatoid arthritis
     Dosage: 15 MG, IN THE THIGH, 1X/WEEK ON THURSDAYS
     Dates: start: 2019, end: 20220106
  2. RASUVO [Suspect]
     Active Substance: METHOTREXATE SODIUM
     Dosage: UNK
     Dates: start: 202203
  3. UNSPECIFIED HIGH BLOOD PRESSURE PILL [Concomitant]
  4. UNSPECIFIED CHOLESTEROL PILL [Concomitant]
  5. FOLIC ACID [Concomitant]
     Active Substance: FOLIC ACID
     Dosage: 5 DOSAGE UNITS, 1X/DAY

REACTIONS (6)
  - COVID-19 pneumonia [Recovered/Resolved]
  - Cellulitis [Recovered/Resolved]
  - Peripheral swelling [Not Recovered/Not Resolved]
  - Swelling [Not Recovered/Not Resolved]
  - Pain [Not Recovered/Not Resolved]
  - Malaise [Recovered/Resolved]

NARRATIVE: CASE EVENT DATE: 20211001
